FAERS Safety Report 12678188 (Version 3)
Quarter: 2017Q3

REPORT INFORMATION
  Report Type: Spontaneous
  Country: SE (occurrence: SE)
  Receive Date: 20160823
  Receipt Date: 20170816
  Transmission Date: 20171127
  Serious: Yes (Other)
  Sender: FDA-Public Use
  Company Number: SE-PFIZER INC-2016398912

PATIENT
  Age: 64 Year
  Sex: Female

DRUGS (8)
  1. XANOR [Suspect]
     Active Substance: ALPRAZOLAM
     Dosage: 1 MG, 3X/DAY
  2. XANOR [Suspect]
     Active Substance: ALPRAZOLAM
     Dosage: 1 TABLET SOMETIMES AND A HALF TABLET SOMETIMES
     Dates: start: 201612
  3. XANOR [Suspect]
     Active Substance: ALPRAZOLAM
     Dosage: HALF TABLET AND OCCASIONALLY 1 TABLET
     Dates: start: 201705
  4. OMEPRAZOLE. [Concomitant]
     Active Substance: OMEPRAZOLE
     Dosage: UNK
  5. XANOR [Suspect]
     Active Substance: ALPRAZOLAM
     Dosage: HALF TABLET, UNK
     Dates: start: 2015
  6. XANOR [Suspect]
     Active Substance: ALPRAZOLAM
     Indication: ANXIETY
     Dosage: 0.5 MG, 2X/DAY
     Dates: start: 2003
  7. REMERON [Concomitant]
     Active Substance: MIRTAZAPINE
     Dosage: UNK
  8. XANOR [Suspect]
     Active Substance: ALPRAZOLAM
     Dosage: 5 DF, DAILY

REACTIONS (6)
  - Alopecia [Not Recovered/Not Resolved]
  - Nausea [Not Recovered/Not Resolved]
  - Withdrawal syndrome [Not Recovered/Not Resolved]
  - Drug effect decreased [Not Recovered/Not Resolved]
  - Colon cancer [Unknown]
  - Anxiety [Unknown]

NARRATIVE: CASE EVENT DATE: 2013
